FAERS Safety Report 6221967-5 (Version None)
Quarter: 2009Q2

REPORT INFORMATION
  Report Type: 
  Country: None (occurrence: None)
  Receive Date: 20090608
  Receipt Date: 20090608
  Transmission Date: 20091009
  Serious: Yes (Other)
  Sender: FDA-Public Use
  Company Number: None

PATIENT
  Age: 32 Year
  Sex: Female
  Weight: 68.0396 kg

DRUGS (1)
  1. TERAZOL 3 [Suspect]
     Indication: FUNGAL INFECTION
     Dosage: 80 MG 1/NIGHT FOR 3 NIGH VAG
     Route: 067
     Dates: start: 20090603, end: 20090604

REACTIONS (6)
  - CHILLS [None]
  - FATIGUE [None]
  - HEADACHE [None]
  - NAUSEA [None]
  - PAIN [None]
  - PYREXIA [None]
